FAERS Safety Report 8588841-0 (Version None)
Quarter: 2012Q3

REPORT INFORMATION
  Report Type: 
  Country: None (occurrence: None)
  Receive Date: 20120813
  Receipt Date: 20120806
  Transmission Date: 20120928
  Serious: Yes (Other)
  Sender: FDA-Public Use
  Company Number: JP-VERTEX PHARMACEUTICALS INC.-AE-2012-011830

PATIENT
  Age: 46 Year
  Sex: Male

DRUGS (10)
  1. OMEPRAZOLE [Concomitant]
     Route: 048
     Dates: end: 20120611
  2. REBETOL [Concomitant]
     Indication: HEPATITIS C
     Route: 048
     Dates: start: 20120508, end: 20120611
  3. FEBURIC [Concomitant]
     Route: 048
  4. ANTEBATE [Concomitant]
     Route: 061
  5. REBETOL [Concomitant]
     Route: 048
     Dates: start: 20120612
  6. PEG-INTRON [Concomitant]
     Route: 058
     Dates: start: 20120725
  7. PEG-INTRON [Concomitant]
     Indication: HEPATITIS C
     Route: 058
     Dates: start: 20120508, end: 20120717
  8. TELAVIC (TELAPREVIR) [Suspect]
     Indication: HEPATITIS C
     Route: 048
     Dates: start: 20120508, end: 20120801
  9. ACETAMINOPHEN [Concomitant]
     Route: 048
     Dates: start: 20120508, end: 20120604
  10. OMEPRAZOLE [Concomitant]
     Route: 048
     Dates: start: 20120612

REACTIONS (1)
  - NEUTROPHIL COUNT DECREASED [None]
